FAERS Safety Report 21984641 (Version 1)
Quarter: 2023Q1

REPORT INFORMATION
  Report Type: Spontaneous
  Country: US (occurrence: None)
  Receive Date: 20230210
  Receipt Date: 20230210
  Transmission Date: 20230417
  Serious: No
  Sender: FDA-Public Use
  Company Number: None

PATIENT
  Sex: Male

DRUGS (16)
  1. AMBRISENTAN [Suspect]
     Active Substance: AMBRISENTAN
     Indication: Pulmonary hypertension
     Dosage: FREQUENCY : DAILY;?
     Route: 048
  2. LETAIRIS [Concomitant]
     Active Substance: AMBRISENTAN
  3. ATENOLOL [Concomitant]
     Active Substance: ATENOLOL
  4. CLARITIN-D 12 HOUR [Concomitant]
     Active Substance: LORATADINE\PSEUDOEPHEDRINE SULFATE
  5. SULFAMETHOXAZOLE/TRIMETHO [Concomitant]
  6. LINZESS [Concomitant]
     Active Substance: LINACLOTIDE
  7. BENADRYL ALLERGY ULTRATAB [Concomitant]
     Active Substance: DIPHENHYDRAMINE HYDROCHLORIDE
  8. ADEMPAS [Concomitant]
     Active Substance: RIOCIGUAT
  9. FOLIC ACID [Concomitant]
     Active Substance: FOLIC ACID
  10. NORTRIPTYLINE HYDROCHLORI [Concomitant]
  11. DICYCLOMINE HYDROCHLORIDE [Concomitant]
     Active Substance: DICYCLOMINE HYDROCHLORIDE
  12. HYDROCODONE\IBUPROFEN [Concomitant]
     Active Substance: HYDROCODONE\IBUPROFEN
  13. WARFARIN SODIUM [Concomitant]
     Active Substance: WARFARIN SODIUM
  14. HYDROXYUREA [Concomitant]
     Active Substance: HYDROXYUREA
  15. FUROSEMIDE [Concomitant]
     Active Substance: FUROSEMIDE
  16. TYLENOL [Concomitant]
     Active Substance: ACETAMINOPHEN

REACTIONS (3)
  - Malaise [None]
  - Therapy interrupted [None]
  - Unevaluable event [None]
